FAERS Safety Report 17478059 (Version 1)
Quarter: 2020Q1

REPORT INFORMATION
  Report Type: Spontaneous
  Country: US (occurrence: US)
  Receive Date: 20200228
  Receipt Date: 20200228
  Transmission Date: 20200409
  Serious: Yes (Other)
  Sender: FDA-Public Use
  Company Number: US-FRESENIUS KABI-FK202002059

PATIENT
  Age: 56 Year
  Sex: Female

DRUGS (3)
  1. CYCLOPHOSPHAMIDE. [Suspect]
     Active Substance: CYCLOPHOSPHAMIDE
     Indication: PHAEOCHROMOCYTOMA
     Route: 065
     Dates: start: 201605, end: 201610
  2. DACARBAZINE (MANUFACTURER UNKNOWN) [Suspect]
     Active Substance: DACARBAZINE
     Indication: PHAEOCHROMOCYTOMA
     Route: 065
     Dates: start: 201605, end: 201610
  3. VINCRISTINE [Suspect]
     Active Substance: VINCRISTINE
     Indication: PHAEOCHROMOCYTOMA
     Route: 065
     Dates: start: 201605, end: 201610

REACTIONS (2)
  - Neuropathy peripheral [Unknown]
  - Disease progression [Unknown]
